FAERS Safety Report 18184446 (Version 1)
Quarter: 2020Q3

REPORT INFORMATION
  Report Type: Spontaneous
  Country: SE (occurrence: SE)
  Receive Date: 20200824
  Receipt Date: 20200824
  Transmission Date: 20201103
  Serious: Yes (Disabling)
  Sender: FDA-Public Use
  Company Number: SE-AUROBINDO-AUR-APL-2020-031990

PATIENT
  Age: 87 Year
  Sex: Female

DRUGS (1)
  1. GABAPENTIN. [Suspect]
     Active Substance: GABAPENTIN
     Indication: PAIN
     Dosage: 100 MILLIGRAM, ONCE A DAY
     Route: 065
     Dates: start: 20181107, end: 20200226

REACTIONS (2)
  - Dysphonia [Recovering/Resolving]
  - Cough [Recovered/Resolved]

NARRATIVE: CASE EVENT DATE: 201910
